FAERS Safety Report 5328142-7 (Version None)
Quarter: 2007Q2

REPORT INFORMATION
  Report Type: 
  Country: None (occurrence: None)
  Receive Date: 20070514
  Receipt Date: 20070427
  Transmission Date: 20071010
  Serious: Yes (Other)
  Sender: FDA-Public Use
  Company Number: US020006

PATIENT
  Age: 19 Year
  Sex: Male

DRUGS (1)
  1. ACTIQ [Suspect]
     Dosage: UNK BUCCAL
     Route: 002
     Dates: start: 20061115

REACTIONS (3)
  - COMA [None]
  - INTENTIONAL DRUG MISUSE [None]
  - RESPIRATORY DEPRESSION [None]
